FAERS Safety Report 5788168-6 (Version None)
Quarter: 2008Q2

REPORT INFORMATION
  Report Type: 
  Country: None (occurrence: None)
  Receive Date: 20080625
  Receipt Date: 20080620
  Transmission Date: 20081010
  Serious: Yes (Other)
  Sender: FDA-Public Use
  Company Number: JP-BOEHRINGER INGELHEIM GMBH, GERMANY-2008-BP-09729NB

PATIENT
  Age: 82 Year
  Sex: Male

DRUGS (3)
  1. SPIRIVA [Suspect]
     Route: 055
     Dates: start: 20080425, end: 20080621
  2. SEREVENT [Concomitant]
     Route: 055
     Dates: start: 20080528
  3. FLUTIDE [Concomitant]
     Route: 065
     Dates: start: 20080604

REACTIONS (5)
  - BLOOD ALKALINE PHOSPHATASE INCREASED [None]
  - EOSINOPHIL COUNT INCREASED [None]
  - GAMMA-GLUTAMYLTRANSFERASE INCREASED [None]
  - MALAISE [None]
  - WHITE BLOOD CELL COUNT INCREASED [None]
